FAERS Safety Report 9358633 (Version 1)
Quarter: 2013Q2

REPORT INFORMATION
  Report Type: Spontaneous
  Country: SI (occurrence: SI)
  Receive Date: 20130620
  Receipt Date: 20130620
  Transmission Date: 20140414
  Serious: Yes (Hospitalization, Other)
  Sender: FDA-Public Use
  Company Number: PHHY2013SI061535

PATIENT
  Sex: Male

DRUGS (3)
  1. AMOKSIKLAV [Suspect]
     Indication: OTITIS MEDIA
     Dosage: 1 DF, QD
     Dates: start: 20130503, end: 20130503
  2. M M RVAXPRO [Suspect]
     Indication: PROPHYLAXIS
     Dates: start: 20130422, end: 20130422
  3. HICONCIL [Suspect]
     Indication: OTITIS MEDIA
     Dosage: 6 ML, UNK
     Dates: start: 20130424, end: 20130430

REACTIONS (8)
  - Nasopharyngitis [Recovered/Resolved]
  - Laryngitis [Recovered/Resolved]
  - Eye inflammation [Recovered/Resolved]
  - Parotid gland enlargement [Recovered/Resolved]
  - Body temperature increased [Recovered/Resolved]
  - Hypersensitivity [Recovered/Resolved]
  - Otitis media [Recovered/Resolved]
  - Rash maculo-papular [Recovered/Resolved]
